FAERS Safety Report 8591791-7 (Version None)
Quarter: 2012Q3

REPORT INFORMATION
  Report Type: 
  Country: None (occurrence: None)
  Receive Date: 20120814
  Receipt Date: 20120808
  Transmission Date: 20120928
  Serious: Yes (Hospitalization)
  Sender: FDA-Public Use
  Company Number: PHHY2012AU044857

PATIENT
  Sex: Female

DRUGS (11)
  1. PANTOPRAZOLE [Concomitant]
     Dosage: 40 MG, UNK
     Route: 048
  2. PREDNISONE TAB [Concomitant]
     Indication: RHEUMATOID ARTHRITIS
     Dosage: 10 MG, UNK
  3. FOLIC ACID [Concomitant]
     Dosage: 10 MG, EVERY 7 DAYS
     Route: 048
  4. AUGMENTIN '125' [Concomitant]
     Dosage: 1 DF, BID
     Route: 048
  5. GLICLAZIDE [Concomitant]
     Dosage: 30 MG, UNK
     Route: 048
  6. PROBIOTICS [Concomitant]
     Dosage: 1 DF, UNK
     Route: 048
  7. SIMVASTATIN [Concomitant]
     Route: 048
  8. METFORMIN HYDROCHLORIDE [Concomitant]
     Dosage: 1.5 G, UNK
     Route: 048
  9. ZOLEDRONOC ACID [Suspect]
     Dosage: 5 MG, UNK
     Route: 042
     Dates: start: 20110530
  10. ACETAMINOPHEN W/ CODEINE [Concomitant]
     Dosage: 2 DF, PRN
  11. METHOTREXATE [Concomitant]
     Dosage: 15 MG, EVERY 7 DAYS
     Route: 048

REACTIONS (9)
  - PYREXIA [None]
  - CARDIOMEGALY [None]
  - PNEUMONIA [None]
  - CHEST DISCOMFORT [None]
  - PLEURITIC PAIN [None]
  - BLOOD CALCIUM DECREASED [None]
  - PAIN [None]
  - ATELECTASIS [None]
  - RALES [None]
